FAERS Safety Report 22033105 (Version 1)
Quarter: 2023Q1

REPORT INFORMATION
  Report Type: Spontaneous
  Country: DK (occurrence: DK)
  Receive Date: 20230224
  Receipt Date: 20230224
  Transmission Date: 20230418
  Serious: Yes (Hospitalization, Other)
  Sender: FDA-Public Use
  Company Number: None

PATIENT
  Age: 58 Year
  Sex: Male

DRUGS (11)
  1. PREDNISOLONE [Suspect]
     Active Substance: PREDNISOLONE
     Indication: Immunosuppressant drug therapy
     Dosage: 5 MILLIGRAM, QD; STANDARD TRIPLE IMMUNOSUPPRESSIVE THERAPY
     Route: 048
  2. PREDNISOLONE [Suspect]
     Active Substance: PREDNISOLONE
     Indication: Renal transplant
  3. TACROLIMUS [Suspect]
     Active Substance: TACROLIMUS
     Indication: Immunosuppressant drug therapy
     Dosage: UNK; STANDARD TRIPLE IMMUNOSUPPRESSIVE THERAPY
     Route: 065
  4. TACROLIMUS [Suspect]
     Active Substance: TACROLIMUS
     Indication: Renal transplant
  5. MYCOPHENOLIC ACID [Suspect]
     Active Substance: MYCOPHENOLIC ACID
     Indication: Immunosuppressant drug therapy
     Dosage: UNK; STANDARD TRIPLE IMMUNOSUPPRESSIVE THERAPY
     Route: 065
  6. MYCOPHENOLIC ACID [Suspect]
     Active Substance: MYCOPHENOLIC ACID
     Indication: Renal transplant
  7. CLOBETASOL PROPIONATE [Suspect]
     Active Substance: CLOBETASOL PROPIONATE
     Indication: Neurodermatitis
     Dosage: 1 DOSAGE FORM, QD
     Route: 061
  8. CLOBETASOL PROPIONATE [Suspect]
     Active Substance: CLOBETASOL PROPIONATE
     Dosage: 1 DOSAGE FORM; PER 2 DAYS; EVERY SECOND DAY FOR THE FOLLOWING TWO MONTHS
     Route: 061
  9. CLOBETASOL PROPIONATE [Suspect]
     Active Substance: CLOBETASOL PROPIONATE
     Dosage: UNK; PER DAY; 3-HOUR OCCLUSIONAL TOPICAL STEROIS ON THE ENTIRE BODY EXCEPT THE FACE FOR TWO WEEKS
     Route: 061
  10. CLOBETASOL PROPIONATE [Suspect]
     Active Substance: CLOBETASOL PROPIONATE
     Dosage: UNK; RESTARTED TS AT A REDUCED DOSE DAILY FOR TWO WEEKS, FOLLOWED BY TWICE PER WEEK
     Route: 061
  11. CLOBETASOL PROPIONATE [Suspect]
     Active Substance: CLOBETASOL PROPIONATE
     Dosage: UNK, THRICE  A WEEK; RESTARTED TS AT A REDUCED DOSE DAILY FOR TWO WEEKS, FOLLOWED BY TWICE PER WEEK
     Route: 061

REACTIONS (3)
  - Hyperglycaemic hyperosmolar nonketotic syndrome [Recovered/Resolved]
  - Glucose tolerance impaired [Recovered/Resolved]
  - Diabetes mellitus [Recovered/Resolved]
